FAERS Safety Report 4868773-1 (Version None)
Quarter: 2005Q4

REPORT INFORMATION
  Report Type: 
  Country: None (occurrence: None)
  Receive Date: 20051223
  Receipt Date: 20051216
  Transmission Date: 20060501
  Serious: Yes (Hospitalization)
  Sender: FDA-Public Use
  Company Number: 2005RR-01342

PATIENT
  Age: 47 Year
  Sex: Female

DRUGS (3)
  1. ACYCLOVIR [Suspect]
     Indication: HERPES ZOSTER
     Dosage: 250 MG TID INTRAVENOUS
     Route: 042
  2. AZATHIOPRINE [Concomitant]
  3. PREDNISOLONE [Concomitant]

REACTIONS (10)
  - AGITATION [None]
  - BLOOD PRESSURE INCREASED [None]
  - COMPUTERISED TOMOGRAM ABNORMAL [None]
  - EXTENSOR PLANTAR RESPONSE [None]
  - HALLUCINATION, VISUAL [None]
  - HYPERREFLEXIA [None]
  - LEUKOENCEPHALOPATHY [None]
  - NUCLEAR MAGNETIC RESONANCE IMAGING BRAIN ABNORMAL [None]
  - SOMNOLENCE [None]
  - VENOGRAM ABNORMAL [None]
